FAERS Safety Report 6805438-0 (Version None)
Quarter: 2010Q2

REPORT INFORMATION
  Report Type: 
  Country: None (occurrence: None)
  Receive Date: 20100628
  Receipt Date: 20071120
  Transmission Date: 20101027
  Serious: No
  Sender: FDA-Public Use
  Company Number: US-PFIZER INC-2007097603

PATIENT
  Sex: Female

DRUGS (2)
  1. PROCARDIA XL [Suspect]
     Indication: HYPERTENSION
  2. TOPROL-XL [Suspect]
     Indication: HYPERTENSION

REACTIONS (2)
  - DIZZINESS [None]
  - PALPITATIONS [None]
